FAERS Safety Report 14425850 (Version 2)
Quarter: 2018Q1

REPORT INFORMATION
  Report Type: Spontaneous
  Country: US (occurrence: US)
  Receive Date: 20180123
  Receipt Date: 20180307
  Transmission Date: 20180509
  Serious: Yes (Hospitalization)
  Sender: FDA-Public Use
  Company Number: US-ALLERGAN-1803259US

PATIENT
  Age: 20 Year
  Sex: Male

DRUGS (2)
  1. VIIBRYD [Suspect]
     Active Substance: VILAZODONE HYDROCHLORIDE
     Dosage: 20 MG, QD
     Route: 065
  2. VIIBRYD [Suspect]
     Active Substance: VILAZODONE HYDROCHLORIDE
     Indication: PRODUCT USED FOR UNKNOWN INDICATION
     Dosage: 10 MG, QD
     Route: 065

REACTIONS (13)
  - Mania [Unknown]
  - Logorrhoea [Unknown]
  - Insomnia [Unknown]
  - Thinking abnormal [Unknown]
  - Inappropriate schedule of drug administration [Unknown]
  - Grandiosity [Unknown]
  - Mental status changes [Unknown]
  - Tachyphrenia [Unknown]
  - Energy increased [Unknown]
  - Abnormal behaviour [Unknown]
  - Hallucination [Unknown]
  - Agitation [Unknown]
  - Aggression [Unknown]
